FAERS Safety Report 6464274-8 (Version None)
Quarter: 2009Q4

REPORT INFORMATION
  Report Type: 
  Country: None (occurrence: None)
  Receive Date: 20091201
  Receipt Date: 20091126
  Transmission Date: 20100525
  Serious: Yes (Other)
  Sender: FDA-Public Use
  Company Number: GXKR2009DE12825

PATIENT
  Age: 39 Year
  Sex: Female

DRUGS (5)
  1. CLOZAPINE (NGX) [Suspect]
     Dosage: UNK
     Route: 048
     Dates: start: 20071101, end: 20080601
  2. CLOZAPINE (NGX) [Suspect]
     Dosage: 150-300 MG DAILY
     Route: 048
     Dates: start: 20080601
  3. VALPROATE SODIUM [Suspect]
     Dosage: 1200 MG, QD
     Route: 048
     Dates: start: 20080701
  4. ABILIFY [Concomitant]
     Route: 048
  5. AMISULPRIDE [Concomitant]
     Route: 048

REACTIONS (2)
  - HYPERPHAGIA [None]
  - WEIGHT INCREASED [None]
